FAERS Safety Report 9790843 (Version 2)
Quarter: 2014Q1

REPORT INFORMATION
  Report Type: Spontaneous
  Country: US (occurrence: US)
  Receive Date: 20131231
  Receipt Date: 20140108
  Transmission Date: 20141002
  Serious: No
  Sender: FDA-Public Use
  Company Number: US-009507513-1312USA009096

PATIENT
  Age: 51 Year
  Sex: Female

DRUGS (1)
  1. OXYTROL FOR WOMEN [Suspect]
     Indication: HYPERTONIC BLADDER
     Dosage: UNK, UNKNOWN
     Route: 062
     Dates: start: 20131203

REACTIONS (2)
  - Paraesthesia [Unknown]
  - Product quality issue [Unknown]
